FAERS Safety Report 10382234 (Version 1)
Quarter: 2014Q3

REPORT INFORMATION
  Report Type: Spontaneous
  Country: JP (occurrence: JP)
  Receive Date: 20140812
  Receipt Date: 20140812
  Transmission Date: 20150326
  Serious: Yes (Death)
  Sender: FDA-Public Use
  Company Number: PHHY2012JP134411

PATIENT
  Age: 78 Year
  Sex: Female

DRUGS (2)
  1. TASIGNA [Suspect]
     Active Substance: NILOTINIB
     Dosage: 400 MG, UNK
  2. TASIGNA [Suspect]
     Active Substance: NILOTINIB
     Dates: start: 20121218

REACTIONS (1)
  - Death [Fatal]
